FAERS Safety Report 6247885-4 (Version None)
Quarter: 2009Q2

REPORT INFORMATION
  Report Type: 
  Country: None (occurrence: None)
  Receive Date: 20090626
  Receipt Date: 20090615
  Transmission Date: 20091009
  Serious: Yes (Hospitalization)
  Sender: FDA-Public Use
  Company Number: NL-MYLANLABS-2009S1010512

PATIENT
  Age: 76 Year
  Sex: Female

DRUGS (3)
  1. DICLOFENAC [Suspect]
     Indication: MUSCULOSKELETAL PAIN
     Dosage: 75MG TWICE DAILY
  2. LITHIUM [Interacting]
     Indication: MAJOR DEPRESSION
     Dosage: 1000MG ONCE DAILY
  3. FLUVOXAMINE MALEATE [Concomitant]
     Indication: MAJOR DEPRESSION
     Dosage: 50MG ONCE DAILY

REACTIONS (2)
  - DELIRIUM [None]
  - DRUG INTERACTION [None]
